FAERS Safety Report 14731504 (Version 2)
Quarter: 2018Q2

REPORT INFORMATION
  Report Type: Spontaneous
  Country: US (occurrence: US)
  Receive Date: 20180407
  Receipt Date: 20180425
  Transmission Date: 20180711
  Serious: Yes (Other)
  Sender: FDA-Public Use
  Company Number: US-TEVA-2018-US-878013

PATIENT
  Sex: Female

DRUGS (1)
  1. FENTANYL. [Suspect]
     Active Substance: FENTANYL
     Indication: PAIN
     Dosage: DOSE STRENGTH:  100MCG
     Route: 065

REACTIONS (9)
  - Lordosis [Unknown]
  - Kyphosis [Unknown]
  - Cervical spinal stenosis [Unknown]
  - Multiple injuries [Unknown]
  - Intervertebral disc protrusion [Unknown]
  - Intervertebral disc degeneration [Unknown]
  - Contusion [Unknown]
  - Nerve compression [Unknown]
  - Scoliosis [Unknown]
